FAERS Safety Report 19465446 (Version 1)
Quarter: 2021Q2

REPORT INFORMATION
  Report Type: Spontaneous
  Country: US (occurrence: US)
  Receive Date: 20210624
  Receipt Date: 20210624
  Transmission Date: 20210717
  Serious: No
  Sender: FDA-Public Use
  Company Number: US-ORGANON-O2106USA001547

PATIENT
  Age: 14 Year
  Sex: Male
  Weight: 31.5 kg

DRUGS (3)
  1. LORATADINE. [Concomitant]
     Active Substance: LORATADINE
     Indication: MALNUTRITION
     Dosage: 5 MILLIGRAM, QD
  2. REMERON [Suspect]
     Active Substance: MIRTAZAPINE
     Indication: MALNUTRITION
     Dosage: 15 MILLIGRAM, ONCE DAILY AT BEDTIME
     Route: 048
  3. RANITIDINE. [Concomitant]
     Active Substance: RANITIDINE
     Indication: MALNUTRITION
     Dosage: 150 MILLIGRAM, BID

REACTIONS (1)
  - Product use issue [Unknown]
